FAERS Safety Report 8575195-9 (Version None)
Quarter: 2012Q2

REPORT INFORMATION
  Report Type: 
  Country: None (occurrence: None)
  Receive Date: 20120423
  Receipt Date: 20090810
  Transmission Date: 20120825
  Serious: Yes (Other)
  Sender: FDA-Public Use
  Company Number: PHEH2009US09021

PATIENT
  Sex: Male

DRUGS (2)
  1. EXJADE [Suspect]
     Indication: SERUM FERRITIN INCREASED
     Dosage: 1500 MG, QD, ORAL
     Route: 048
     Dates: start: 20090323, end: 20090801
  2. EXJADE [Suspect]
     Indication: METAL POISONING
     Dosage: 1500 MG, QD, ORAL
     Route: 048
     Dates: start: 20090323, end: 20090801

REACTIONS (1)
  - ACUTE MYELOID LEUKAEMIA [None]
